FAERS Safety Report 8036528-5 (Version None)
Quarter: 2012Q1

REPORT INFORMATION
  Report Type: 
  Country: None (occurrence: None)
  Receive Date: 20120109
  Receipt Date: 20120104
  Transmission Date: 20120608
  Serious: Yes (Hospitalization)
  Sender: FDA-Public Use
  Company Number: 2011SP056334

PATIENT
  Age: 43 Year
  Sex: Female
  Weight: 74.3 kg

DRUGS (3)
  1. DIAZEPAM [Suspect]
     Indication: RESTLESSNESS
     Dosage: 5 MG;PRN;PO
     Route: 048
     Dates: start: 20110918, end: 20110926
  2. SYCREST (ASENAPINE /05706901/) [Suspect]
     Indication: BIPOLAR I DISORDER
     Dosage: 5 MG;QD;PO, 10 MG;QD;PO
     Route: 048
     Dates: start: 20110919, end: 20110924
  3. SYCREST (ASENAPINE /05706901/) [Suspect]
     Indication: BIPOLAR I DISORDER
     Dosage: 5 MG;QD;PO, 10 MG;QD;PO
     Route: 048
     Dates: start: 20110925, end: 20110926

REACTIONS (9)
  - PLATELET COUNT INCREASED [None]
  - NEUTROPHIL PERCENTAGE INCREASED [None]
  - LABORATORY TEST ABNORMAL [None]
  - PROTEIN TOTAL DECREASED [None]
  - ANXIETY [None]
  - WHITE BLOOD CELL COUNT INCREASED [None]
  - C-REACTIVE PROTEIN INCREASED [None]
  - DELIRIUM [None]
  - BLOOD ALKALINE PHOSPHATASE INCREASED [None]
